FAERS Safety Report 21668963 (Version 1)
Quarter: 2022Q4

REPORT INFORMATION
  Report Type: Spontaneous
  Country: US (occurrence: None)
  Receive Date: 20221201
  Receipt Date: 20221201
  Transmission Date: 20230113
  Serious: Yes (Death, Hospitalization)
  Sender: FDA-Public Use
  Company Number: None

PATIENT
  Age: 78 Year
  Sex: Female
  Weight: 59.4 kg

DRUGS (15)
  1. IBRANCE [Suspect]
     Active Substance: PALBOCICLIB
     Indication: Breast cancer stage IV
     Dosage: FREQUENCY : DAILY;?
     Route: 048
     Dates: start: 20221017, end: 20221106
  2. IBRANCE [Suspect]
     Active Substance: PALBOCICLIB
     Indication: Metastases to pleura
  3. anazotrazole [Concomitant]
     Dates: start: 20220815
  4. METOPROLOL [Concomitant]
     Active Substance: METOPROLOL
     Dates: start: 20220723
  5. AMIODARONE [Concomitant]
     Active Substance: AMIODARONE
     Dates: start: 20220723
  6. ENTRESTO [Concomitant]
     Active Substance: SACUBITRIL\VALSARTAN
     Dates: start: 20220723, end: 20221110
  7. ELIQUIS [Concomitant]
     Active Substance: APIXABAN
     Dates: start: 20220723, end: 20221110
  8. FUROSEMIDE [Concomitant]
     Active Substance: FUROSEMIDE
     Dates: start: 20220723, end: 20221110
  9. SPIRONOLACTONE [Concomitant]
     Active Substance: SPIRONOLACTONE
     Dates: start: 20220723, end: 20221110
  10. LEVOTHYROXINE [Concomitant]
     Active Substance: LEVOTHYROXINE
     Dates: start: 20220723
  11. EMPAGLIFLOZIN [Concomitant]
     Active Substance: EMPAGLIFLOZIN
     Dates: start: 20220723, end: 20221110
  12. ATORVASTATIN [Concomitant]
     Active Substance: ATORVASTATIN
     Dates: start: 20220723
  13. PANTOPRAZOLE [Concomitant]
     Active Substance: PANTOPRAZOLE
     Dates: start: 20220723
  14. FAMOTIDINE [Concomitant]
     Active Substance: FAMOTIDINE
  15. FULVESTRANT [Concomitant]
     Active Substance: FULVESTRANT
     Dates: start: 20221107, end: 20221107

REACTIONS (3)
  - Pancytopenia [None]
  - Chills [None]
  - Cardiac arrest [None]

NARRATIVE: CASE EVENT DATE: 20221107
